FAERS Safety Report 6697376-1 (Version None)
Quarter: 2010Q2

REPORT INFORMATION
  Report Type: 
  Country: None (occurrence: None)
  Receive Date: 20100426
  Receipt Date: 20100416
  Transmission Date: 20101027
  Serious: Yes (Hospitalization, Other)
  Sender: FDA-Public Use
  Company Number: JP-ELI_LILLY_AND_COMPANY-JP201001000034

PATIENT
  Age: 65 Year
  Sex: Male

DRUGS (14)
  1. ALIMTA [Suspect]
     Indication: LARGE CELL LUNG CANCER STAGE IV
     Dosage: 500 MG/M2, UNK
     Route: 042
     Dates: start: 20091215, end: 20091215
  2. GEMZAR [Suspect]
     Indication: LARGE CELL LUNG CANCER STAGE IV
     Route: 042
     Dates: start: 20080701, end: 20081001
  3. GEMZAR [Suspect]
     Route: 042
     Dates: start: 20081101, end: 20091101
  4. VITAMIN B12 NOS [Concomitant]
     Dosage: 1 MG, OTHER
     Route: 030
     Dates: start: 20091124, end: 20091124
  5. FOLIC ACID [Concomitant]
     Dosage: UNK, UNK
     Route: 048
     Dates: start: 20091124, end: 20091225
  6. CISPLATIN [Concomitant]
     Indication: LARGE CELL LUNG CANCER STAGE IV
     Dosage: UNK, UNK
     Route: 042
     Dates: start: 20080701, end: 20081001
  7. PHENYTOIN [Concomitant]
     Dosage: 100 MG, 3/D
     Route: 048
     Dates: start: 20091120, end: 20091220
  8. GASTROM [Concomitant]
     Dosage: 1.5 G, 2/D
     Route: 048
     Dates: start: 20080701
  9. PROTECADIN [Concomitant]
     Dosage: 10 MG, 2/D
     Route: 048
     Dates: start: 20080701
  10. DEPAS [Concomitant]
     Dosage: 0.5 MG, 2/D
     Route: 048
     Dates: start: 20080701
  11. LUDIOMIL /00331902/ [Concomitant]
     Dosage: 10 MG, DAILY (1/D)
     Route: 048
     Dates: start: 20080701
  12. BENZALIN [Concomitant]
     Dosage: 5 MG, DAILY (1/D)
     Route: 048
     Dates: start: 20080701
  13. MYSLEE [Concomitant]
     Dosage: 5 MG, DAILY (1/D)
     Route: 048
     Dates: start: 20080701
  14. HOKUNALIN [Concomitant]
     Dosage: 2 MG, DAILY (1/D)
     Route: 062
     Dates: start: 20080701

REACTIONS (6)
  - ALANINE AMINOTRANSFERASE DECREASED [None]
  - ASPARTATE AMINOTRANSFERASE DECREASED [None]
  - BLOOD LACTATE DEHYDROGENASE INCREASED [None]
  - BONE MARROW FAILURE [None]
  - NEUTROPHIL COUNT DECREASED [None]
  - STEVENS-JOHNSON SYNDROME [None]
